FAERS Safety Report 9926101 (Version 1)
Quarter: 2014Q1

REPORT INFORMATION
  Report Type: Report from Study
  Country: US (occurrence: US)
  Receive Date: 20140226
  Receipt Date: 20140226
  Transmission Date: 20141002
  Serious: Yes (Hospitalization, Other)
  Sender: FDA-Public Use
  Company Number: US-ALEXION PHARMACEUTICALS INC.-A201400534

PATIENT
  Sex: Male

DRUGS (1)
  1. SOLIRIS [Suspect]
     Indication: HAEMOLYTIC URAEMIC SYNDROME
     Dosage: 900 MG, QW
     Route: 042
     Dates: start: 20140122

REACTIONS (6)
  - Disseminated intravascular coagulation [Not Recovered/Not Resolved]
  - Volvulus of small bowel [Unknown]
  - Deep vein thrombosis [Unknown]
  - Anaemia [Not Recovered/Not Resolved]
  - Haemorrhage [Unknown]
  - Malnutrition [Unknown]
